FAERS Safety Report 7732154-3 (Version None)
Quarter: 2011Q3

REPORT INFORMATION
  Report Type: 
  Country: None (occurrence: None)
  Receive Date: 20110906
  Receipt Date: 20110902
  Transmission Date: 20111222
  Serious: Yes (Other)
  Sender: FDA-Public Use
  Company Number: US-PFIZER INC-2011206002

PATIENT
  Sex: Female
  Weight: 56.689 kg

DRUGS (3)
  1. ROBITUSSIN COUGH AND CHEST CONGESTION DM MAX [Suspect]
     Indication: BRONCHIAL SECRETION RETENTION
  2. ADVIL LIQUI-GELS [Concomitant]
     Indication: PAIN
     Dosage: UNK
  3. ROBITUSSIN COUGH AND CHEST CONGESTION DM MAX [Suspect]
     Indication: COUGH
     Dosage: UNK, 2X/DAY
     Route: 048
     Dates: start: 20110901, end: 20110902

REACTIONS (4)
  - APHONIA [None]
  - POOR QUALITY SLEEP [None]
  - COUGH [None]
  - FEELING ABNORMAL [None]
